FAERS Safety Report 4652920-0 (Version None)
Quarter: 2005Q2

REPORT INFORMATION
  Report Type: 
  Country: None (occurrence: None)
  Receive Date: 20050503
  Receipt Date: 20050414
  Transmission Date: 20051028
  Serious: Yes (Congenital Anomaly)
  Sender: FDA-Public Use
  Company Number: B0277194A

PATIENT
  Sex: Male
  Weight: 3.3113 kg

DRUGS (1)
  1. LAMICTAL [Suspect]
     Indication: EPILEPSY
     Dates: start: 19990126

REACTIONS (3)
  - CONGENITAL HYDRONEPHROSIS [None]
  - CONGENITAL MEGAURETER [None]
  - DRUG EXPOSURE DURING PREGNANCY [None]
